FAERS Safety Report 17874210 (Version 1)
Quarter: 2020Q2

REPORT INFORMATION
  Report Type: Spontaneous
  Country: CN (occurrence: CN)
  Receive Date: 20200609
  Receipt Date: 20200609
  Transmission Date: 20200714
  Serious: Yes (Other)
  Sender: FDA-Public Use
  Company Number: CN-ASTRAZENECA-2020SE72738

PATIENT
  Age: 87 Year
  Sex: Male
  Weight: 55 kg

DRUGS (2)
  1. ACETYLCYSTEINE. [Concomitant]
     Active Substance: ACETYLCYSTEINE
     Dates: start: 20200518, end: 20200519
  2. PULMICORT RESPULES [Suspect]
     Active Substance: BUDESONIDE
     Route: 055
     Dates: start: 20200518, end: 20200519

REACTIONS (1)
  - Dyspnoea [Recovering/Resolving]

NARRATIVE: CASE EVENT DATE: 20200519
